FAERS Safety Report 10681772 (Version 1)
Quarter: 2014Q4

REPORT INFORMATION
  Report Type: Spontaneous
  Country: AR (occurrence: None)
  Receive Date: 20141224
  Receipt Date: 20141224
  Transmission Date: 20150529
  Serious: Yes (Congenital Anomaly, Other)
  Sender: FDA-Public Use
  Company Number: AR-ALKEM-000784

PATIENT
  Sex: Female
  Weight: 2.18 kg

DRUGS (3)
  1. MYCOPHENOLATE MOFETIL (MYCOPHENOLATE MOFETIL) [Suspect]
     Active Substance: MYCOPHENOLATE MOFETIL
     Indication: SYSTEMIC LUPUS ERYTHEMATOSUS
     Dosage: 1.00000000-GBQ -1.0 DAYS
     Route: 064
  2. METHYLPREDNISONE (METHYLPREDNISONE) [Suspect]
     Active Substance: METHYLPREDNISOLONE
     Indication: SYSTEMIC LUPUS ERYTHEMATOSUS
     Route: 064
  3. ENOXAPARIN (ENOXAPARIN) [Suspect]
     Active Substance: ENOXAPARIN
     Indication: SYSTEMIC LUPUS ERYTHEMATOSUS
     Route: 064

REACTIONS (10)
  - Oesophageal atresia [None]
  - Coloboma [None]
  - Atrioventricular septal defect [None]
  - Retrognathia [None]
  - Hemivertebra [None]
  - Microtia [None]
  - Cleft lip and palate [None]
  - Maternal drugs affecting foetus [None]
  - Patent ductus arteriosus [None]
  - Cardiomyopathy [None]
